FAERS Safety Report 15594408 (Version 3)
Quarter: 2019Q2

REPORT INFORMATION
  Report Type: Spontaneous
  Country: JP (occurrence: JP)
  Receive Date: 20181107
  Receipt Date: 20190405
  Transmission Date: 20190711
  Serious: Yes (Death, Life-Threatening, Other)
  Sender: FDA-Public Use
  Company Number: JP-ALLERGAN-1852451US

PATIENT
  Sex: Male

DRUGS (6)
  1. BOTOX [Suspect]
     Active Substance: ONABOTULINUMTOXINA
     Indication: EXTREMITY CONTRACTURE
     Dosage: UNK, SINGLE
     Route: 030
     Dates: start: 20140627, end: 20140627
  2. BOTOX [Suspect]
     Active Substance: ONABOTULINUMTOXINA
     Dosage: 100 UNITS, SINGLE
     Route: 030
     Dates: start: 20131002, end: 20131002
  3. LAC-B [Concomitant]
     Active Substance: BIFIDOBACTERIUM SPP.
     Indication: GASTROINTESTINAL DISORDER
     Dosage: 3 G, QD
     Route: 065
     Dates: start: 2009, end: 20141022
  4. CARBOCISTEINE [Concomitant]
     Active Substance: CARBOCYSTEINE
     Indication: PRODUCTIVE COUGH
     Dosage: 2 G, QD
     Route: 065
     Dates: start: 2009, end: 20141022
  5. BOTOX [Suspect]
     Active Substance: ONABOTULINUMTOXINA
     Dosage: 100 UNITS, SINGLE
     Route: 030
     Dates: start: 20140306, end: 20140306
  6. TAKEPRON OD [Concomitant]
     Active Substance: LANSOPRAZOLE
     Indication: PRODUCT USED FOR UNKNOWN INDICATION
     Dosage: 15 MG, QD
     Route: 065
     Dates: start: 2009, end: 20141022

REACTIONS (8)
  - Off label use [Unknown]
  - Pyrexia [Recovering/Resolving]
  - Sepsis [Fatal]
  - Disease progression [Unknown]
  - Asthenia [Unknown]
  - Pneumonia [Fatal]
  - Sputum increased [Recovering/Resolving]
  - Catheter site ulcer [Unknown]

NARRATIVE: CASE EVENT DATE: 20150401
